FAERS Safety Report 14356040 (Version 1)
Quarter: 2018Q1

REPORT INFORMATION
  Report Type: Spontaneous
  Country: US (occurrence: US)
  Receive Date: 20180104
  Receipt Date: 20180104
  Transmission Date: 20180509
  Serious: Yes (Hospitalization)
  Sender: FDA-Public Use
  Company Number: None

PATIENT
  Sex: Female

DRUGS (12)
  1. TEMAZEPAM. [Concomitant]
     Active Substance: TEMAZEPAM
  2. FOLIC ACID. [Concomitant]
     Active Substance: FOLIC ACID
  3. SMZ/TMP [Concomitant]
     Active Substance: SULFAMETHOXAZOLE\TRIMETHOPRIM
  4. LYRICA [Concomitant]
     Active Substance: PREGABALIN
  5. CLONAZEPAM. [Concomitant]
     Active Substance: CLONAZEPAM
  6. DULOXETINE. [Concomitant]
     Active Substance: DULOXETINE
  7. OXYCO/APAP [Concomitant]
  8. VITAMIN D [Concomitant]
     Active Substance: CHOLECALCIFEROL
  9. CYCLOBENZAPRINE. [Concomitant]
     Active Substance: CYCLOBENZAPRINE
  10. FENOFIBRATE. [Concomitant]
     Active Substance: FENOFIBRATE
  11. ATORVASTATIN [Concomitant]
     Active Substance: ATORVASTATIN
  12. GILENYA [Suspect]
     Active Substance: FINGOLIMOD HYDROCHLORIDE
     Indication: MULTIPLE SCLEROSIS
     Route: 048
     Dates: start: 20161015

REACTIONS (1)
  - Therapy cessation [None]
